FAERS Safety Report 9212964 (Version 1)
Quarter: 2013Q1

REPORT INFORMATION
  Report Type: Spontaneous
  Country: US (occurrence: None)
  Receive Date: 20120827
  Receipt Date: 20120827
  Transmission Date: 20140127
  Serious: No
  Sender: FDA-Public Use
  Company Number: 351781

PATIENT
  Age: 66 Year
  Sex: Female

DRUGS (2)
  1. VICTOZA [Suspect]
     Indication: TYPE 2 DIABETES MELLITUS
     Route: 058
     Dates: start: 2010, end: 201205
  2. GLIMEPRIRIDE SANDOZ [Concomitant]

REACTIONS (3)
  - Nausea [None]
  - Vomiting [None]
  - Glycosylated haemoglobin increased [None]
